FAERS Safety Report 5345637-0 (Version None)
Quarter: 2007Q2

REPORT INFORMATION
  Report Type: 
  Country: None (occurrence: None)
  Receive Date: 20070424
  Receipt Date: 20060804
  Transmission Date: 20071010
  Serious: Yes (Other)
  Sender: FDA-Public Use
  Company Number: TEST00206002531

PATIENT
  Sex: Male

DRUGS (1)
  1. ANDROGEL [Suspect]
     Dosage: DAILY TRANSCUTANEOUS DAILY DOSE

REACTIONS (1)
  - PROSTATE CANCER [None]
